FAERS Safety Report 23074047 (Version 7)
Quarter: 2024Q2

REPORT INFORMATION
  Report Type: Spontaneous
  Country: FR (occurrence: FR)
  Receive Date: 20231017
  Receipt Date: 20240424
  Transmission Date: 20240716
  Serious: Yes (Other)
  Sender: FDA-Public Use
  Company Number: FR-JNJFOC-20231026905

PATIENT
  Age: 56 Year
  Sex: Female

DRUGS (18)
  1. VELCADE [Suspect]
     Active Substance: BORTEZOMIB
     Indication: Plasma cell disorder
     Dosage: UNK
     Route: 065
  2. VELCADE [Suspect]
     Active Substance: BORTEZOMIB
     Indication: Chronic leukaemia
  3. DEXAMETHASONE [Suspect]
     Active Substance: DEXAMETHASONE
     Indication: Plasma cell disorder
     Dosage: UNK, Q3WEEKS
     Route: 065
  4. DEXAMETHASONE [Suspect]
     Active Substance: DEXAMETHASONE
     Indication: Chronic leukaemia
  5. DARZALEX [Suspect]
     Active Substance: DARATUMUMAB
     Indication: Product used for unknown indication
     Dosage: UNK
     Route: 065
  6. CYCLOPHOSPHAMIDE [Suspect]
     Active Substance: CYCLOPHOSPHAMIDE
     Indication: Plasma cell disorder
     Dosage: UNK
     Route: 065
  7. CYCLOPHOSPHAMIDE [Suspect]
     Active Substance: CYCLOPHOSPHAMIDE
     Indication: Chronic leukaemia
  8. AZACITIDINE [Suspect]
     Active Substance: AZACITIDINE
     Indication: Plasma cell disorder
     Dosage: UNK
     Route: 065
  9. AZACITIDINE [Suspect]
     Active Substance: AZACITIDINE
     Indication: Chronic leukaemia
  10. DASATINIB [Suspect]
     Active Substance: DASATINIB
     Indication: Chronic leukaemia
     Dosage: UNK
     Route: 065
  11. CARFILZOMIB [Suspect]
     Active Substance: CARFILZOMIB
     Indication: Plasma cell disorder
     Dosage: UNK
     Route: 065
  12. CARFILZOMIB [Suspect]
     Active Substance: CARFILZOMIB
     Indication: Chronic leukaemia
  13. RUXOLITINIB [Suspect]
     Active Substance: RUXOLITINIB
     Indication: Chronic leukaemia
     Dosage: UNK
     Route: 065
  14. THYMOCYTE IMMUNE GLOBULIN NOS [Concomitant]
     Active Substance: THYMOCYTE IMMUNE GLOBULIN NOS
     Indication: Bone marrow conditioning regimen
     Dosage: UNK
     Route: 065
  15. RUXOLITINIB [Concomitant]
     Active Substance: RUXOLITINIB
     Indication: Chronic leukaemia
     Dosage: UNK
     Route: 065
  16. DASATINIB [Concomitant]
     Active Substance: DASATINIB
     Indication: Chronic leukaemia
     Dosage: UNK
     Route: 065
  17. BUSULFAN [Concomitant]
     Active Substance: BUSULFAN
     Indication: Bone marrow conditioning regimen
     Dosage: UNK
     Route: 065
  18. FLUDARABINE [Concomitant]
     Active Substance: FLUDARABINE PHOSPHATE
     Dosage: UNK
     Route: 065

REACTIONS (10)
  - Thrombocytopenia [Unknown]
  - Drug ineffective [Unknown]
  - Leukocytosis [Unknown]
  - Therapeutic product effect incomplete [Unknown]
  - Disease progression [Unknown]
  - Hypergammaglobulinaemia benign monoclonal [Unknown]
  - Oedema peripheral [Unknown]
  - Acute myeloid leukaemia [Unknown]
  - Adverse event [Unknown]
  - Off label use [Unknown]
